FAERS Safety Report 20680400 (Version 3)
Quarter: 2022Q3

REPORT INFORMATION
  Report Type: Spontaneous
  Country: US (occurrence: US)
  Receive Date: 20220406
  Receipt Date: 20220706
  Transmission Date: 20221026
  Serious: Yes (Other)
  Sender: FDA-Public Use
  Company Number: US-BIOGEN-2022BI01110018

PATIENT
  Age: 64 Year
  Sex: Female

DRUGS (1)
  1. TECFIDERA [Suspect]
     Active Substance: DIMETHYL FUMARATE
     Indication: Product used for unknown indication
     Route: 050
     Dates: start: 2021

REACTIONS (4)
  - Spinal compression fracture [Unknown]
  - Fall [Recovered/Resolved]
  - Muscle spasms [Unknown]
  - Flushing [Unknown]

NARRATIVE: CASE EVENT DATE: 20220103
